FAERS Safety Report 16671955 (Version 1)
Quarter: 2019Q3

REPORT INFORMATION
  Report Type: Spontaneous
  Country: TW (occurrence: TW)
  Receive Date: 20190806
  Receipt Date: 20190806
  Transmission Date: 20191004
  Serious: Yes (Other)
  Sender: FDA-Public Use
  Company Number: TW-SUN PHARMACEUTICAL INDUSTRIES LTD-2019R1-197697

PATIENT
  Age: 60 Year
  Sex: Female

DRUGS (2)
  1. CLOZAPINE. [Suspect]
     Active Substance: CLOZAPINE
     Indication: PSYCHOTIC SYMPTOM
     Dosage: 125 MILLIGRAM, DAILY
     Route: 065
  2. CLOZAPINE. [Suspect]
     Active Substance: CLOZAPINE
     Dosage: 150 MILLIGRAM, DAILY
     Route: 065

REACTIONS (4)
  - Ill-defined disorder [Unknown]
  - Septic shock [Unknown]
  - Cytomegalovirus colitis [Unknown]
  - Abdominal infection [Unknown]
